FAERS Safety Report 25251442 (Version 3)
Quarter: 2025Q2

REPORT INFORMATION
  Report Type: Spontaneous
  Country: US (occurrence: US)
  Receive Date: 20250429
  Receipt Date: 20250630
  Transmission Date: 20250717
  Serious: No
  Sender: TRAVERE THERAPEUTICS
  Company Number: US-TRAVERE-2025TVT00392

PATIENT
  Age: 83 Year
  Sex: Male

DRUGS (2)
  1. FILSPARI [Suspect]
     Active Substance: SPARSENTAN
     Indication: IgA nephropathy
     Route: 048
  2. FILSPARI [Suspect]
     Active Substance: SPARSENTAN
     Route: 048
     Dates: end: 20250522

REACTIONS (4)
  - Haematochezia [Recovered/Resolved]
  - Blood pressure systolic increased [None]
  - Poor quality sleep [Unknown]
  - Back pain [Unknown]

NARRATIVE: CASE EVENT DATE: 20250401
